FAERS Safety Report 6760614-0 (Version None)
Quarter: 2010Q2

REPORT INFORMATION
  Report Type: 
  Country: None (occurrence: None)
  Receive Date: 20100608
  Receipt Date: 20100527
  Transmission Date: 20101027
  Serious: Yes (Death)
  Sender: FDA-Public Use
  Company Number: US-PFIZER INC-2010067390

PATIENT
  Sex: Male

DRUGS (1)
  1. VFEND [Suspect]

REACTIONS (1)
  - DEATH [None]
